FAERS Safety Report 15000733 (Version 1)
Quarter: 2018Q2

REPORT INFORMATION
  Report Type: Spontaneous
  Country: US (occurrence: US)
  Receive Date: 20180612
  Receipt Date: 20180612
  Transmission Date: 20180711
  Serious: Yes (Other)
  Sender: FDA-Public Use
  Company Number: US-PFIZER INC-2018233659

PATIENT
  Age: 53 Year
  Sex: Female

DRUGS (7)
  1. GABAPENTIN. [Suspect]
     Active Substance: GABAPENTIN
     Indication: NEUROPATHY PERIPHERAL
     Dosage: 300 MG, 3X/DAY
     Dates: start: 2010
  2. GABAPENTIN. [Suspect]
     Active Substance: GABAPENTIN
     Dosage: 800 MG, 2X/DAY
  3. GABAPENTIN. [Suspect]
     Active Substance: GABAPENTIN
     Dosage: 600 MG, 1X/DAY
  4. GABAPENTIN. [Suspect]
     Active Substance: GABAPENTIN
     Dosage: 600 MG, 3X/DAY
  5. VIMPAT [Concomitant]
     Active Substance: LACOSAMIDE
     Indication: SEIZURE
     Dosage: 50MG, 1/2 TABLET IN THE MORNING, WHOLE TABLET IN THE EVENING
     Dates: start: 2015
  6. ONFI [Concomitant]
     Active Substance: CLOBAZAM
     Indication: SEIZURE
     Dosage: 10MG IN MORNING AND 2 IN THE EVENING
     Dates: start: 2015
  7. GABAPENTIN. [Suspect]
     Active Substance: GABAPENTIN
     Dosage: 800 MG, 3X/DAY

REACTIONS (6)
  - Epilepsy [Unknown]
  - Malaise [Unknown]
  - Eating disorder [Unknown]
  - Drug ineffective for unapproved indication [Not Recovered/Not Resolved]
  - Muscle spasms [Unknown]
  - Seizure [Unknown]

NARRATIVE: CASE EVENT DATE: 2015
